FAERS Safety Report 8996817 (Version 2)
Quarter: 2013Q1

REPORT INFORMATION
  Report Type: Spontaneous
  Country: JP (occurrence: JP)
  Receive Date: 20130104
  Receipt Date: 20130205
  Transmission Date: 20140127
  Serious: Yes (Hospitalization)
  Sender: FDA-Public Use
  Company Number: JP-SANOFI-AVENTIS-2012SA084138

PATIENT
  Age: 63 Year
  Sex: Male
  Weight: 52 kg

DRUGS (29)
  1. ELPLAT [Suspect]
     Indication: RECTAL CANCER
     Dosage: TOTAL 8 CYCLES
     Route: 041
     Dates: start: 20120717, end: 20120717
  2. ELPLAT [Suspect]
     Indication: RECTAL CANCER
     Dosage: TOTAL 8 CYCLES
     Route: 041
     Dates: start: 20120801, end: 20120801
  3. ELPLAT [Suspect]
     Indication: RECTAL CANCER
     Dosage: TOTAL 8 CYCLES
     Route: 041
     Dates: start: 20120822, end: 20120822
  4. ELPLAT [Suspect]
     Indication: RECTAL CANCER
     Dosage: TOTAL 8 CYCLES
     Route: 041
     Dates: start: 20120905, end: 20120905
  5. ELPLAT [Suspect]
     Indication: RECTAL CANCER
     Dosage: TOTAL 8 CYCLES
     Route: 041
     Dates: start: 20120919, end: 20120919
  6. ELPLAT [Suspect]
     Indication: RECTAL CANCER
     Dosage: TOTAL 8 CYCLES
     Route: 041
     Dates: start: 20121003, end: 20121003
  7. ELPLAT [Suspect]
     Indication: RECTAL CANCER
     Dosage: TOTAL 8 CYCLES
     Route: 041
     Dates: start: 20121017, end: 20121017
  8. ELPLAT [Suspect]
     Indication: RECTAL CANCER
     Dosage: TOTAL 8 CYCLES
     Route: 041
     Dates: start: 20121031, end: 20121031
  9. 5-FU [Suspect]
     Indication: RECTAL CANCER
     Route: 040
     Dates: start: 20120717, end: 20120717
  10. 5-FU [Suspect]
     Indication: RECTAL CANCER
     Route: 041
     Dates: start: 20120717, end: 20120717
  11. 5-FU [Suspect]
     Indication: RECTAL CANCER
     Route: 040
     Dates: start: 20120801, end: 20120801
  12. 5-FU [Suspect]
     Indication: RECTAL CANCER
     Route: 041
     Dates: start: 20120801, end: 20120801
  13. 5-FU [Suspect]
     Indication: RECTAL CANCER
     Route: 040
     Dates: start: 20120822, end: 20120822
  14. 5-FU [Suspect]
     Indication: RECTAL CANCER
     Route: 041
     Dates: start: 20120822, end: 20120822
  15. 5-FU [Suspect]
     Indication: RECTAL CANCER
     Route: 040
     Dates: start: 20120905, end: 20120905
  16. 5-FU [Suspect]
     Indication: RECTAL CANCER
     Route: 041
     Dates: start: 20120905, end: 20120905
  17. 5-FU [Suspect]
     Indication: RECTAL CANCER
     Route: 040
     Dates: start: 20120919, end: 20120919
  18. 5-FU [Suspect]
     Indication: RECTAL CANCER
     Route: 041
     Dates: start: 20120919, end: 20120919
  19. 5-FU [Suspect]
     Indication: RECTAL CANCER
     Route: 040
     Dates: start: 20121003, end: 20121003
  20. 5-FU [Suspect]
     Indication: RECTAL CANCER
     Route: 041
     Dates: start: 20121003, end: 20121003
  21. 5-FU [Suspect]
     Indication: RECTAL CANCER
     Route: 040
     Dates: start: 20121017, end: 20121017
  22. 5-FU [Suspect]
     Indication: RECTAL CANCER
     Route: 041
     Dates: start: 20121017, end: 20121017
  23. 5-FU [Suspect]
     Indication: RECTAL CANCER
     Route: 040
     Dates: start: 20121031, end: 20121031
  24. 5-FU [Suspect]
     Indication: RECTAL CANCER
     Route: 041
     Dates: start: 20121031, end: 20121031
  25. MONOCLONAL ANTIBODIES [Concomitant]
     Indication: RECTAL CANCER
     Dosage: TOTAL 8 CYCLES; 6 MG/KG
     Route: 041
     Dates: start: 20120717, end: 20120717
  26. MONOCLONAL ANTIBODIES [Concomitant]
     Indication: RECTAL CANCER
     Dosage: TOTAL 8 CYCLES; 6 MG/KG
     Route: 041
     Dates: start: 20121003, end: 20121003
  27. CALCIUM LEVOFOLINATE [Concomitant]
     Dosage: 188.9 MG/M2
     Dates: start: 20120717, end: 20120717
  28. CALCIUM LEVOFOLINATE [Concomitant]
     Dosage: 157 MG/M2
     Dates: start: 20121003, end: 20121003
  29. MAGNESIUM SULFATE [Concomitant]
     Dates: start: 20120905, end: 20121031

REACTIONS (5)
  - Fibrin degradation products increased [Recovering/Resolving]
  - Muscular weakness [Recovered/Resolved]
  - Decreased appetite [Recovered/Resolved]
  - White blood cell count decreased [Recovered/Resolved]
  - Neutrophil count decreased [Recovered/Resolved]
